FAERS Safety Report 8089415-0 (Version None)
Quarter: 2012Q1

REPORT INFORMATION
  Report Type: 
  Country: None (occurrence: None)
  Receive Date: 20120128
  Receipt Date: 20110809
  Transmission Date: 20120608
  Serious: No
  Sender: FDA-Public Use
  Company Number: US-ABBOTT-11P-163-0723765-00

PATIENT
  Sex: Female

DRUGS (10)
  1. LORTAB [Concomitant]
     Indication: PAIN
     Dosage: 10MGS/500MGS 1 EVERY 4-6 HOURS
  2. PREDNISONE TAB [Concomitant]
     Indication: ARTHRITIS
  3. KLOR-CON [Concomitant]
     Indication: ELECTROLYTE SUBSTITUTION THERAPY
  4. LABETALOL HCL [Concomitant]
     Indication: FLUID RETENTION
  5. HUMIRA [Suspect]
     Indication: RHEUMATOID ARTHRITIS
     Route: 058
     Dates: start: 20110420, end: 20110501
  6. METHOTREXATE [Concomitant]
     Indication: PRODUCT USED FOR UNKNOWN INDICATION
  7. LASIX [Concomitant]
     Indication: FLUID RETENTION
  8. CLONIDINE [Concomitant]
     Indication: BLOOD PRESSURE INCREASED
  9. OXYBUTYNIN [Concomitant]
     Indication: HYPERTONIC BLADDER
  10. FOLIC ACID [Concomitant]
     Indication: VITAMIN SUPPLEMENTATION

REACTIONS (4)
  - DYSPHAGIA [None]
  - MUCOSAL INFLAMMATION [None]
  - LACERATION [None]
  - OROPHARYNGEAL PAIN [None]
